FAERS Safety Report 5609892-1 (Version None)
Quarter: 2008Q1

REPORT INFORMATION
  Report Type: 
  Country: None (occurrence: None)
  Receive Date: 20080131
  Receipt Date: 20080114
  Transmission Date: 20080703
  Serious: No
  Sender: FDA-Public Use
  Company Number: US-BAYER-200715210NA

PATIENT
  Age: 56 Year
  Sex: Female
  Weight: 50 kg

DRUGS (2)
  1. CLIMARA [Suspect]
     Indication: HORMONE REPLACEMENT THERAPY
     Route: 062
     Dates: start: 20071014
  2. PROVERA [Concomitant]
     Indication: OESTROGEN THERAPY
     Route: 048
     Dates: start: 19990101

REACTIONS (1)
  - PAIN IN EXTREMITY [None]
